FAERS Safety Report 21777336 (Version 1)
Quarter: 2022Q4

REPORT INFORMATION
  Report Type: Report from Study
  Country: US (occurrence: US)
  Receive Date: 20221226
  Receipt Date: 20221226
  Transmission Date: 20230113
  Serious: Yes (Other)
  Sender: FDA-Public Use
  Company Number: US-ABBVIE-4248898

PATIENT
  Sex: Male

DRUGS (1)
  1. VENCLEXTA [Suspect]
     Active Substance: VENETOCLAX
     Indication: Chronic lymphocytic leukaemia
     Dosage: LAST ADMIN DATE:2022, ONSET DATE FOR DROPPED HEMOGLOBIN, FEET SWELLED, RASH AND WEAK: 2022
     Route: 048
     Dates: start: 202211

REACTIONS (4)
  - Haemoglobin decreased [Unknown]
  - Peripheral swelling [Unknown]
  - Rash [Unknown]
  - Asthenia [Unknown]
